FAERS Safety Report 9771906 (Version 1)
Quarter: 2013Q4

REPORT INFORMATION
  Report Type: Spontaneous
  Country: FR (occurrence: None)
  Receive Date: 20131003
  Receipt Date: 20131003
  Transmission Date: 20140711
  Serious: Yes (Hospitalization)
  Sender: FDA-Public Use
  Company Number: 7238578

PATIENT
  Age: 90 Year
  Sex: Female

DRUGS (7)
  1. LEVOTHYROX (LEVOTHYROXINE SODIUM) (TABLET) (LEVOTHYROXINE SODIUM) [Suspect]
     Indication: PRODUCT USED FOR UNKNOWN INDICATION
     Dosage: 125 MCG EVEN DAYS AND 150 MCG ODD DAYS (1 IN 1 D)
     Route: 048
  2. MINISINTROM (ACENCOUMAROL) (1 MG, TABLET) (ACENOCOUMAROL) [Suspect]
     Indication: PRODUCT USED FOR UNKNOWN INDICATION
     Dates: end: 20110827
  3. KARDEGIC /00002701/ (ACETYLSALICYLATE LYSINE) (75 MG, POWDER FOR ORAL SOLUTION) (ACETYLSALICYLATE LYSINE) [Suspect]
     Indication: PRODUCT USED FOR UNKNOWN INDICATION
     Route: 048
     Dates: end: 20110827
  4. FUROSEMIDE (FUROSEMIDE) (40 MG) (FUROSEMIDE) [Concomitant]
  5. ISOPTINE (VERAPAMIL HYDROCHLORIDE) (VERAPAMIL HYDROCHLORIDE) [Concomitant]
  6. HEMIGOXINE (DIGOXIN) (0.125 MG) (DIGOXIN) [Concomitant]
  7. HYDREA (HYDROXYCARBAMIDE) (500 MG) (HYDROXYCARBAMIDE) [Concomitant]

REACTIONS (5)
  - Subdural haematoma [None]
  - International normalised ratio increased [None]
  - Drug interaction [None]
  - Palpitations [None]
  - Atrioventricular block [None]
